FAERS Safety Report 25343335 (Version 1)
Quarter: 2025Q2

REPORT INFORMATION
  Report Type: Spontaneous
  Country: CN (occurrence: CN)
  Receive Date: 20250521
  Receipt Date: 20250521
  Transmission Date: 20250716
  Serious: Yes (Life-Threatening)
  Sender: PFIZER
  Company Number: CN-PFIZER INC-PV202500060362

PATIENT
  Age: 28 Year
  Sex: Female

DRUGS (4)
  1. MEROPENEM [Suspect]
     Active Substance: MEROPENEM
     Indication: Antibiotic therapy
     Dosage: 1 G, 3X/DAY
  2. MEROPENEM [Suspect]
     Active Substance: MEROPENEM
     Indication: Cooling therapy
  3. TEICOPLANIN [Suspect]
     Active Substance: TEICOPLANIN
     Indication: Antibiotic therapy
     Dosage: 600 MG, 1X/DAY
  4. TEICOPLANIN [Suspect]
     Active Substance: TEICOPLANIN
     Indication: Cooling therapy

REACTIONS (1)
  - Drug ineffective [Unknown]
